FAERS Safety Report 8343470-9 (Version None)
Quarter: 2012Q2

REPORT INFORMATION
  Report Type: 
  Country: None (occurrence: None)
  Receive Date: 20120503
  Receipt Date: 20120503
  Transmission Date: 20120825
  Serious: Yes (Hospitalization)
  Sender: FDA-Public Use
  Company Number: None

PATIENT
  Sex: Male
  Weight: 10.2 kg

DRUGS (4)
  1. VINCRISTINE SULFATE [Suspect]
     Dosage: 1 MG
  2. ETOPOSIDE [Suspect]
     Dosage: 75 MG
  3. CYCLOPHOSPHAMIDE [Suspect]
     Dosage: 1836 MG
  4. CISPLATIN [Suspect]
     Dosage: 35 MG

REACTIONS (11)
  - JEJUNITIS [None]
  - VOMITING [None]
  - ZYGOMYCOSIS [None]
  - ASPERGILLOSIS [None]
  - RESPIRATORY DISTRESS [None]
  - SMALL INTESTINAL OBSTRUCTION [None]
  - CEREBRAL VENTRICLE DILATATION [None]
  - INTESTINAL PERFORATION [None]
  - INTESTINAL ISCHAEMIA [None]
  - GASTROINTESTINAL NECROSIS [None]
  - CANDIDIASIS [None]
